FAERS Safety Report 7062532-X (Version None)
Quarter: 2010Q4

REPORT INFORMATION
  Report Type: 
  Country: None (occurrence: None)
  Receive Date: 20101026
  Receipt Date: 20091116
  Transmission Date: 20110411
  Serious: No
  Sender: FDA-Public Use
  Company Number: US-PFIZER INC-2009299691

PATIENT
  Sex: Female

DRUGS (5)
  1. LIPITOR [Suspect]
     Indication: BLOOD CHOLESTEROL INCREASED
     Dosage: 20 MG, 1X/DAY
     Route: 048
  2. NORVASC [Concomitant]
     Dosage: 2.5MG, 3X/WEEK
  3. ZAROXOLYN [Concomitant]
     Dosage: UNK
  4. POTASSIUM [Concomitant]
     Dosage: UNK
  5. LANOXIN [Concomitant]
     Dosage: UNK

REACTIONS (2)
  - ORAL PAIN [None]
  - THROAT IRRITATION [None]
